FAERS Safety Report 14528627 (Version 2)
Quarter: 2019Q2

REPORT INFORMATION
  Report Type: Spontaneous
  Country: IT (occurrence: IT)
  Receive Date: 20180214
  Receipt Date: 20190413
  Transmission Date: 20190711
  Serious: Yes (Hospitalization, Other)
  Sender: FDA-Public Use
  Company Number: IT-ACCORD-063480

PATIENT
  Age: 67 Year
  Sex: Female

DRUGS (5)
  1. MYCOPHENOLIC ACID. [Suspect]
     Active Substance: MYCOPHENOLIC ACID
     Indication: RENAL TRANSPLANT
     Route: 065
  2. METHYLPREDNISONE [Suspect]
     Active Substance: METHYLPREDNISOLONE
     Indication: IMMUNOSUPPRESSION
     Dosage: 6 MG ONCE DAILY
  3. TACROLIMUS. [Suspect]
     Active Substance: TACROLIMUS
     Dosage: UNK UNK, UNKNOWN FREQ. (LEVELS: 5-6 NG/ML) ()
     Route: 065
  4. TACROLIMUS. [Suspect]
     Active Substance: TACROLIMUS
     Indication: RENAL TRANSPLANT
     Dosage: LEVELS: 5-6 NG/ML
     Route: 065
  5. BASILIXIMAB [Concomitant]
     Active Substance: BASILIXIMAB

REACTIONS (2)
  - Rhodococcus infection [Recovered/Resolved]
  - Malacoplakia gastrointestinal [Recovered/Resolved]
